FAERS Safety Report 5120579-4 (Version None)
Quarter: 2006Q4

REPORT INFORMATION
  Report Type: 
  Country: None (occurrence: None)
  Receive Date: 20061004
  Receipt Date: 20060811
  Transmission Date: 20070319
  Serious: Yes (Hospitalization)
  Sender: FDA-Public Use
  Company Number: US-AMGEN-KDL189850

PATIENT
  Sex: Female

DRUGS (3)
  1. ENBREL [Suspect]
     Indication: RHEUMATOID ARTHRITIS
     Route: 058
     Dates: start: 20060215, end: 20060627
  2. PREDNISONE [Concomitant]
     Dates: start: 20051208, end: 20060301
  3. METHOTREXATE [Concomitant]
     Dates: start: 20060126, end: 20060209

REACTIONS (9)
  - AGITATION [None]
  - CONDITION AGGRAVATED [None]
  - DISTURBANCE IN ATTENTION [None]
  - HALLUCINATION [None]
  - INJECTION SITE PAIN [None]
  - PARAESTHESIA [None]
  - PERIPHERAL SENSORY NEUROPATHY [None]
  - SPEECH DISORDER [None]
  - THINKING ABNORMAL [None]
